FAERS Safety Report 8423995-8 (Version None)
Quarter: 2012Q2

REPORT INFORMATION
  Report Type: 
  Country: None (occurrence: None)
  Receive Date: 20120608
  Receipt Date: 20110527
  Transmission Date: 20120825
  Serious: No
  Sender: FDA-Public Use
  Company Number: US-ASTRAZENECA-2011SE33149

PATIENT
  Age: 80 Year
  Sex: Male
  Weight: 97.1 kg

DRUGS (5)
  1. HYTRIN [Concomitant]
  2. LEVOXYL [Concomitant]
  3. PULMICORT FLEXHALER [Suspect]
     Indication: CHRONIC OBSTRUCTIVE PULMONARY DISEASE
     Route: 055
  4. ACETAMINOPHEN [Concomitant]
  5. PULMICORT FLEXHALER [Suspect]
     Indication: ASTHMA
     Route: 055

REACTIONS (2)
  - INCREASED UPPER AIRWAY SECRETION [None]
  - COUGH [None]
